FAERS Safety Report 18550693 (Version 2)
Quarter: 2024Q1

REPORT INFORMATION
  Report Type: Report from Study
  Country: US (occurrence: US)
  Receive Date: 20201126
  Receipt Date: 20240304
  Transmission Date: 20240410
  Serious: No
  Sender: FDA-Public Use
  Company Number: US-TAKEDA-US202030288

PATIENT
  Sex: Female

DRUGS (2)
  1. VELAGLUCERASE ALFA [Suspect]
     Active Substance: VELAGLUCERASE ALFA
     Indication: Product used for unknown indication
     Dosage: UNK UNK, 2/MONTH
     Route: 042
     Dates: start: 20111118
  2. VELAGLUCERASE ALFA [Suspect]
     Active Substance: VELAGLUCERASE ALFA
     Dosage: UNK
     Route: 042

REACTIONS (3)
  - Upper limb fracture [Recovering/Resolving]
  - Otitis externa [Recovered/Resolved]
  - Migraine [Recovered/Resolved]
